FAERS Safety Report 8158327-6 (Version None)
Quarter: 2012Q1

REPORT INFORMATION
  Report Type: 
  Country: None (occurrence: None)
  Receive Date: 20120217
  Receipt Date: 20111226
  Transmission Date: 20120608
  Serious: Yes (Hospitalization)
  Sender: FDA-Public Use
  Company Number: 001078677A

PATIENT
  Sex: Female

DRUGS (2)
  1. MEANINGFUL BEAUTY DAY CREAM SPF 20 GUTHY/RENKER [Suspect]
     Indication: PROPHYLAXIS AGAINST SOLAR RADIATION
     Dosage: DAILY, SKIN CARE
  2. MEANINGFUL BEAUTY ANTI-AGING CREAM, GUTHY/RENKER [Suspect]
     Indication: PROPHYLAXIS
     Dosage: DAILY, SKIN CARE

REACTIONS (2)
  - ESCHERICHIA INFECTION [None]
  - PNEUMONIA [None]
